FAERS Safety Report 9403075 (Version 4)
Quarter: 2014Q1

REPORT INFORMATION
  Report Type: Spontaneous
  Country: US (occurrence: US)
  Receive Date: 20130716
  Receipt Date: 20140103
  Transmission Date: 20141002
  Serious: Yes (Hospitalization)
  Sender: FDA-Public Use
  Company Number: US-GLAXOSMITHKLINE-A1033321A

PATIENT
  Age: 53 Year
  Sex: Female
  Weight: 129.5 kg

DRUGS (1)
  1. AVANDIA [Suspect]
     Indication: DIABETES MELLITUS
     Dosage: 4MG PER DAY
     Route: 048
     Dates: start: 20070530, end: 20100323

REACTIONS (5)
  - Cerebrovascular accident [Unknown]
  - Blindness [Unknown]
  - Diabetic retinal oedema [Unknown]
  - Angina pectoris [Unknown]
  - Atrial fibrillation [Unknown]
